FAERS Safety Report 4294851-4 (Version None)
Quarter: 2004Q1

REPORT INFORMATION
  Report Type: 
  Country: None (occurrence: None)
  Receive Date: 20040216
  Receipt Date: 20030127
  Transmission Date: 20041129
  Serious: No
  Sender: FDA-Public Use
  Company Number: US-GLAXOSMITHKLINE-A0394034A

PATIENT
  Age: 33 Year
  Sex: Male
  Weight: 75 kg

DRUGS (3)
  1. LAMICTAL [Suspect]
     Dosage: 25MG PER DAY
     Route: 048
  2. REMERON [Concomitant]
     Dosage: 30MG UNKNOWN
     Route: 048
     Dates: start: 19980101
  3. DIAZEPAM [Concomitant]
     Indication: PANIC DISORDER
     Dosage: 10MG THREE TIMES PER DAY
     Route: 048
     Dates: start: 20000101, end: 20030208

REACTIONS (1)
  - CROHN'S DISEASE [None]
